FAERS Safety Report 18710078 (Version 1)
Quarter: 2021Q1

REPORT INFORMATION
  Report Type: Spontaneous
  Country: CA (occurrence: CA)
  Receive Date: 20210107
  Receipt Date: 20210107
  Transmission Date: 20210419
  Serious: Yes (Other)
  Sender: FDA-Public Use
  Company Number: CA-VIFOR (INTERNATIONAL) INC.-VIT-2021-00204

PATIENT
  Age: 30 Year
  Sex: Female

DRUGS (20)
  1. MEASELS MUMPS RUBELLA VIRUS VACCINE [Concomitant]
  2. OXYTOCIN. [Concomitant]
     Active Substance: OXYTOCIN
  3. PENCILLIN G [Suspect]
     Active Substance: PENICILLIN G
     Route: 042
  4. FUROSEMIDE. [Concomitant]
     Active Substance: FUROSEMIDE
  5. MINERALS/VITAMINS NOS [Concomitant]
     Active Substance: MINERALS\VITAMINS
  6. BETAMETHASONE. [Concomitant]
     Active Substance: BETAMETHASONE
  7. FERROUS SULFATE. [Concomitant]
     Active Substance: FERROUS SULFATE
  8. FRAGMIN [Concomitant]
     Active Substance: DALTEPARIN SODIUM
  9. PENCILLIN G [Suspect]
     Active Substance: PENICILLIN G
     Indication: TOCOLYSIS
     Route: 042
  10. ACETAMINOPHEN. [Concomitant]
     Active Substance: ACETAMINOPHEN
  11. DOCUSATE SODIUM. [Concomitant]
     Active Substance: DOCUSATE SODIUM
  12. HYDROCORTISONE ACETATE. [Concomitant]
     Active Substance: HYDROCORTISONE ACETATE
  13. INDOMETHACIN. [Concomitant]
     Active Substance: INDOMETHACIN
  14. VELTASSA [Suspect]
     Active Substance: PATIROMER
     Indication: ANAEMIA
     Route: 042
  15. VELTASSA [Suspect]
     Active Substance: PATIROMER
  16. VITAMIN C [Concomitant]
     Active Substance: ASCORBIC ACID
  17. OXAZEPAM. [Concomitant]
     Active Substance: OXAZEPAM
  18. HYDROMORPHONE [Concomitant]
     Active Substance: HYDROMORPHONE
  19. LIDOCAINE. [Concomitant]
     Active Substance: LIDOCAINE
  20. NAPROXEN. [Concomitant]
     Active Substance: NAPROXEN

REACTIONS (7)
  - Hepatic enzyme increased [Recovered/Resolved]
  - Product use in unapproved indication [Unknown]
  - Pruritus [Recovered/Resolved]
  - Chest discomfort [Recovered/Resolved]
  - Anaphylactic shock [Recovered/Resolved]
  - Dyspnoea [Recovered/Resolved]
  - Product use issue [Unknown]
